FAERS Safety Report 5957499-9 (Version None)
Quarter: 2008Q4

REPORT INFORMATION
  Report Type: 
  Country: None (occurrence: None)
  Receive Date: 20081113
  Receipt Date: 20081103
  Transmission Date: 20090506
  Serious: Yes (Other)
  Sender: FDA-Public Use
  Company Number: CHPA2008US18920

PATIENT
  Age: 75 Year
  Sex: Female
  Weight: 56.7 kg

DRUGS (7)
  1. MAALOX MS TOTAL STOMACH RELIEF (NCH)(BISMUTH SUBSALICYLATE) SUSPENSION [Suspect]
     Indication: DYSPEPSIA
     Dosage: 6 TSP, ONCE IN A DAY, ORAL
     Route: 048
     Dates: start: 20081001, end: 20081031
  2. FELDENE [Concomitant]
  3. CARTIA /USA/ (DILTIAZEM HYDROCHLORIDE) [Concomitant]
  4. METOPROLOL TARTRATE [Concomitant]
  5. LEXAPRO [Concomitant]
  6. VESICARE [Concomitant]
  7. BUTALBITAL [Concomitant]

REACTIONS (4)
  - ASTHENIA [None]
  - DRUG INEFFECTIVE [None]
  - FAECES DISCOLOURED [None]
  - HAEMATOCHEZIA [None]
